FAERS Safety Report 9325409 (Version 1)
Quarter: 2013Q2

REPORT INFORMATION
  Report Type: Spontaneous
  Country: IN (occurrence: IN)
  Receive Date: 20130604
  Receipt Date: 20130604
  Transmission Date: 20140414
  Serious: Yes (Life-Threatening)
  Sender: FDA-Public Use
  Company Number: IN-MERCK-1305IND017026

PATIENT
  Age: 42 Year
  Sex: 0

DRUGS (4)
  1. VIRAFERONPEG [Suspect]
     Indication: HEPATITIS C
     Dosage: 100 MICROGRAM, UNK
  2. VIRAFERONPEG [Suspect]
     Dosage: UNK
  3. REBETOL [Suspect]
     Indication: HEPATITIS C
     Dosage: UNK
  4. REBETOL [Suspect]
     Dosage: UNK

REACTIONS (12)
  - Platelet count decreased [Not Recovered/Not Resolved]
  - General physical condition abnormal [Unknown]
  - Asthenia [Unknown]
  - Alopecia [Unknown]
  - Personality change [Unknown]
  - Weight decreased [Unknown]
  - Osteopenia [Unknown]
  - General physical health deterioration [Unknown]
  - Amnesia [Unknown]
  - Aggression [Unknown]
  - Insomnia [Unknown]
  - Hepatitis C [Unknown]
